FAERS Safety Report 8622600-5 (Version None)
Quarter: 2012Q3

REPORT INFORMATION
  Report Type: 
  Country: None (occurrence: None)
  Receive Date: 20120827
  Receipt Date: 20120813
  Transmission Date: 20120928
  Serious: No
  Sender: FDA-Public Use
  Company Number: US-B.I. PHARMACEUTICALS,INC./RIDGEFIELD-2012-BP-19041BP

PATIENT
  Sex: Male

DRUGS (15)
  1. PRILOSEC [Concomitant]
     Indication: GASTROOESOPHAGEAL REFLUX DISEASE
     Dosage: 20 MG
     Route: 048
  2. HYDROCODONE BITARTRATE [Concomitant]
     Indication: PAIN
     Route: 048
  3. ASTELIN [Concomitant]
     Indication: NASAL CONGESTION
     Route: 045
  4. MENS MULTIVITAMIN [Concomitant]
     Indication: SUPPLEMENTATION THERAPY
     Route: 048
  5. ASCORBIC ACID [Concomitant]
     Indication: SUPPLEMENTATION THERAPY
     Dosage: 500 MG
     Route: 048
  6. THICKET [Concomitant]
     Indication: DYSPHAGIA
     Route: 048
  7. FLOMAX [Concomitant]
     Indication: POLLAKIURIA
     Dosage: 0.4 MG
     Route: 048
  8. MIRALEX [Concomitant]
     Indication: CONSTIPATION
     Route: 048
  9. AGGRENOX [Suspect]
     Indication: CEREBROVASCULAR ACCIDENT PROPHYLAXIS
     Route: 048
     Dates: start: 20120809
  10. CLARITIN [Concomitant]
     Indication: MULTIPLE ALLERGIES
     Dosage: 10 MG
     Route: 048
  11. MELOXICAM [Concomitant]
     Indication: ARTHRITIS
     Dosage: 15 MG
     Route: 048
  12. SINGULAIR [Concomitant]
     Indication: MULTIPLE ALLERGIES
     Dosage: 10 MG
     Route: 048
  13. SIMVASTATIN [Concomitant]
     Indication: BLOOD CHOLESTEROL INCREASED
     Dosage: 20 MG
     Route: 048
  14. ALLOPURINOL [Concomitant]
     Indication: GOUT
     Dosage: 300 MG
     Route: 048
  15. TRAZODONE HCL [Concomitant]
     Indication: SLEEP DISORDER
     Dosage: 25 MG
     Route: 048

REACTIONS (3)
  - HEADACHE [None]
  - COMMUNICATION DISORDER [None]
  - PAIN [None]
